FAERS Safety Report 17504109 (Version 1)
Quarter: 2020Q1

REPORT INFORMATION
  Report Type: Spontaneous
  Country: US (occurrence: US)
  Receive Date: 20200305
  Receipt Date: 20200305
  Transmission Date: 20200409
  Serious: No
  Sender: FDA-Public Use
  Company Number: US-BAYER-2020-035643

PATIENT
  Age: 83 Year
  Sex: Male

DRUGS (1)
  1. ALEVE [Suspect]
     Active Substance: NAPROXEN SODIUM
     Indication: PAIN
     Dosage: 1 DF, IRR
     Route: 048
     Dates: end: 20200127

REACTIONS (2)
  - Expired product administered [Recovered/Resolved]
  - Therapeutic response unexpected [Unknown]
